FAERS Safety Report 22021538 (Version 1)
Quarter: 2023Q1

REPORT INFORMATION
  Report Type: Spontaneous
  Country: US (occurrence: None)
  Receive Date: 20230218
  Receipt Date: 20230218
  Transmission Date: 20230418
  Serious: Yes (Other)
  Sender: FDA-Public Use
  Company Number: None

PATIENT
  Sex: Female

DRUGS (2)
  1. METAMUCIL THERAPY FOR REGULARITY [Suspect]
     Active Substance: PSYLLIUM HUSK
     Indication: Incontinence
  2. HERBALS [Concomitant]
     Active Substance: HERBALS

REACTIONS (6)
  - Back pain [None]
  - Vomiting [None]
  - Flatulence [None]
  - Dyspepsia [None]
  - Crying [None]
  - Food aversion [None]

NARRATIVE: CASE EVENT DATE: 20221124
